FAERS Safety Report 23462980 (Version 1)
Quarter: 2024Q1

REPORT INFORMATION
  Report Type: Spontaneous
  Country: US (occurrence: US)
  Receive Date: 20240131
  Receipt Date: 20240131
  Transmission Date: 20240410
  Serious: No
  Sender: FDA-Public Use
  Company Number: US-009507513-2401USA015302

PATIENT
  Age: 42 Year
  Sex: Female

DRUGS (4)
  1. PRIMAXIN IV [Suspect]
     Active Substance: CILASTATIN SODIUM\IMIPENEM
     Indication: Mycobacterial infection
  2. CLARITHROMYCIN [Concomitant]
     Active Substance: CLARITHROMYCIN
     Indication: Mycobacterial infection
  3. MOXIFLOXACIN [Concomitant]
     Active Substance: MOXIFLOXACIN
     Indication: Mycobacterial infection
  4. CEFTAROLINE [Concomitant]
     Active Substance: CEFTAROLINE
     Indication: Mycobacterial infection

REACTIONS (1)
  - Product use in unapproved indication [Unknown]
